FAERS Safety Report 25060840 (Version 3)
Quarter: 2025Q2

REPORT INFORMATION
  Report Type: Spontaneous
  Country: US (occurrence: US)
  Receive Date: 20250310
  Receipt Date: 20250526
  Transmission Date: 20250717
  Serious: No
  Sender: ABBVIE
  Company Number: US-ABBVIE-6171394

PATIENT
  Age: 28 Year
  Sex: Female
  Weight: 67 kg

DRUGS (1)
  1. LILETTA [Suspect]
     Active Substance: LEVONORGESTREL
     Indication: Contraception
     Route: 015
     Dates: start: 20250305, end: 20250306

REACTIONS (1)
  - Expired device used [Recovered/Resolved]

NARRATIVE: CASE EVENT DATE: 20250305
